FAERS Safety Report 8622115-4 (Version None)
Quarter: 2012Q3

REPORT INFORMATION
  Report Type: 
  Country: None (occurrence: None)
  Receive Date: 20120826
  Receipt Date: 20060620
  Transmission Date: 20120928
  Serious: Yes (Other)
  Sender: FDA-Public Use
  Company Number: PHHY2006CA009477

PATIENT
  Sex: Female

DRUGS (1)
  1. SANDOSTATIN LAR [Suspect]
     Indication: GRAFT VERSUS HOST DISEASE IN INTESTINE
     Dosage: 20 MG, QMO
     Route: 030
     Dates: start: 20050722, end: 20060131

REACTIONS (2)
  - MALNUTRITION [None]
  - GASTROINTESTINAL DISORDER [None]
